FAERS Safety Report 17950033 (Version 1)
Quarter: 2020Q2

REPORT INFORMATION
  Report Type: Report from Study
  Country: None (occurrence: CA)
  Receive Date: 20200625
  Receipt Date: 20200625
  Transmission Date: 20200714
  Serious: Yes (Other)
  Sender: FDA-Public Use
  Company Number: CA-ABBVIE-20K-028-3458936-00

PATIENT
  Age: 33 Year
  Sex: Male

DRUGS (1)
  1. HUMIRA [Suspect]
     Active Substance: ADALIMUMAB
     Indication: COLITIS ULCERATIVE
     Route: 058
     Dates: start: 20200406

REACTIONS (9)
  - Fatigue [Unknown]
  - Loss of consciousness [Recovered/Resolved]
  - Cyanosis [Unknown]
  - Dyspnoea [Unknown]
  - Presyncope [Unknown]
  - Asthenia [Unknown]
  - Mydriasis [Unknown]
  - Apnoea [Unknown]
  - Seizure [Unknown]

NARRATIVE: CASE EVENT DATE: 202006
